FAERS Safety Report 7991158-6 (Version None)
Quarter: 2011Q4

REPORT INFORMATION
  Report Type: 
  Country: None (occurrence: None)
  Receive Date: 20111215
  Receipt Date: 20111129
  Transmission Date: 20120403
  Serious: Yes (Other)
  Sender: FDA-Public Use
  Company Number: 2011SP044934

PATIENT
  Age: 62 Year
  Sex: Female

DRUGS (13)
  1. BONIVA [Concomitant]
  2. PEG-INTRON [Suspect]
     Indication: PRODUCT USED FOR UNKNOWN INDICATION
  3. AMBIEN [Concomitant]
  4. ZOLOFT [Concomitant]
  5. VICTRELIS [Suspect]
     Indication: HEPATITIS C
     Dosage: 800 MG;TID;PO
     Route: 048
     Dates: start: 20110901
  6. PROTONIX [Concomitant]
  7. REBETOL [Suspect]
     Indication: PRODUCT USED FOR UNKNOWN INDICATION
  8. SYNTHROID [Concomitant]
  9. MAXALT [Concomitant]
  10. NAPROXEN [Concomitant]
  11. ZANTAC [Concomitant]
  12. NEURONTIN [Concomitant]
  13. CARISOPRODOL [Concomitant]

REACTIONS (24)
  - CAPSULE PHYSICAL ISSUE [None]
  - DRY MOUTH [None]
  - SWOLLEN TONGUE [None]
  - LOSS OF CONSCIOUSNESS [None]
  - DIZZINESS [None]
  - SYNCOPE [None]
  - LIP SWELLING [None]
  - PRODUCT TASTE ABNORMAL [None]
  - MOUTH HAEMORRHAGE [None]
  - GINGIVAL BLEEDING [None]
  - SKIN EXFOLIATION [None]
  - STOMATITIS [None]
  - PHARYNGEAL HAEMORRHAGE [None]
  - EYE SWELLING [None]
  - CHEILITIS [None]
  - WRONG TECHNIQUE IN DRUG USAGE PROCESS [None]
  - TONGUE DRY [None]
  - TONGUE HAEMORRHAGE [None]
  - ANXIETY [None]
  - PRURITUS [None]
  - OROPHARYNGEAL PAIN [None]
  - ORAL PAIN [None]
  - BLISTER [None]
  - DYSPNOEA [None]
